FAERS Safety Report 6382735-7 (Version None)
Quarter: 2009Q3

REPORT INFORMATION
  Report Type: 
  Country: None (occurrence: None)
  Receive Date: 20090930
  Receipt Date: 20090921
  Transmission Date: 20100115
  Serious: Yes (Death)
  Sender: FDA-Public Use
  Company Number: IT-TEVA-210142ISR

PATIENT
  Age: 53 Year
  Sex: Male

DRUGS (4)
  1. FLUDARABINE [Suspect]
     Dosage: 6 CYCLES
     Dates: start: 20051201
  2. RITUXIMAB [Suspect]
     Dosage: 6 CYCLES
     Dates: start: 20051201
  3. CYCLOPHOSPHAMIDE [Suspect]
     Dosage: 6 CYCLES
     Dates: start: 20051201
  4. ALEMTUZUMAB [Suspect]
     Dosage: 12 DOSES
     Dates: start: 20070601, end: 20070701

REACTIONS (1)
  - EPSTEIN-BARR VIRUS ASSOCIATED LYMPHOPROLIFERATIVE DISORDER [None]
